FAERS Safety Report 26118310 (Version 1)
Quarter: 2025Q4

REPORT INFORMATION
  Report Type: Spontaneous
  Country: US (occurrence: US)
  Receive Date: 20251203
  Receipt Date: 20251203
  Transmission Date: 20260118
  Serious: No
  Sender: EISAI
  Company Number: US-Eisai-EC-2025-199845

PATIENT
  Age: 72 Year
  Sex: Male
  Weight: 76.839 kg

DRUGS (2)
  1. LEQEMBI [Suspect]
     Active Substance: LECANEMAB-IRMB
     Indication: Dementia Alzheimer^s type
     Dosage: DOSE UNKNOWN
     Route: 042
     Dates: start: 20250513, end: 202510
  2. LEQEMBI [Suspect]
     Active Substance: LECANEMAB-IRMB
     Dosage: DOSE UNKNOWN (13TH INFUSION)
     Route: 042
     Dates: start: 20251103, end: 20251103

REACTIONS (1)
  - Cerebral microhaemorrhage [Unknown]

NARRATIVE: CASE EVENT DATE: 20251104
